FAERS Safety Report 26199531 (Version 1)
Quarter: 2025Q4

REPORT INFORMATION
  Report Type: Spontaneous
  Country: JP (occurrence: JP)
  Receive Date: 20251225
  Receipt Date: 20251225
  Transmission Date: 20260118
  Serious: Yes (Death, Other)
  Sender: AMNEAL
  Company Number: JP-AMNEAL PHARMACEUTICALS-2025-AMRX-04948

PATIENT

DRUGS (1)
  1. ONGENTYS [Suspect]
     Active Substance: OPICAPONE
     Indication: Parkinson^s disease
     Dosage: UNK
     Route: 048

REACTIONS (1)
  - Pneumonia aspiration [Fatal]
